FAERS Safety Report 5532971-4 (Version None)
Quarter: 2007Q4

REPORT INFORMATION
  Report Type: 
  Country: None (occurrence: None)
  Receive Date: 20071129
  Receipt Date: 20071129
  Transmission Date: 20080405
  Serious: Yes (Life-Threatening)
  Sender: FDA-Public Use
  Company Number: None

PATIENT
  Sex: Male

DRUGS (1)
  1. GADOLINIUM [Suspect]
     Indication: NUCLEAR MAGNETIC RESONANCE IMAGING

REACTIONS (10)
  - APNOEA [None]
  - ASTHENIA [None]
  - CYANOSIS [None]
  - ELECTROMECHANICAL DISSOCIATION [None]
  - MALAISE [None]
  - PALLOR [None]
  - PULSE PRESSURE DECREASED [None]
  - RESPIRATORY RATE DECREASED [None]
  - SINUS TACHYCARDIA [None]
  - VENTRICULAR FIBRILLATION [None]
